FAERS Safety Report 6910324-1 (Version None)
Quarter: 2010Q3

REPORT INFORMATION
  Report Type: 
  Country: None (occurrence: None)
  Receive Date: 20100806
  Receipt Date: 20100726
  Transmission Date: 20110219
  Serious: Yes (Other)
  Sender: FDA-Public Use
  Company Number: US-PFIZER INC-2010077149

PATIENT
  Age: 70 Year
  Sex: Female
  Weight: 94 kg

DRUGS (1)
  1. SUTENT [Suspect]
     Indication: RENAL CELL CARCINOMA
     Dosage: 25 MG, 1X/DAY, FOR 4 WEEKS, 2 WEEKS REST, EVERY 6 WEEK
     Route: 048
     Dates: start: 20100301

REACTIONS (1)
  - MYOCARDIAL INFARCTION [None]
